FAERS Safety Report 13598276 (Version 2)
Quarter: 2017Q2

REPORT INFORMATION
  Report Type: Spontaneous
  Country: JP (occurrence: JP)
  Receive Date: 20170531
  Receipt Date: 20170626
  Transmission Date: 20170830
  Serious: Yes (Hospitalization)
  Sender: FDA-Public Use
  Company Number: JP-EISAI MEDICAL RESEARCH-EC-2017-027885

PATIENT
  Age: 53 Year
  Sex: Female

DRUGS (1)
  1. HALAVEN [Suspect]
     Active Substance: ERIBULIN MESYLATE
     Indication: BREAST CANCER
     Route: 042
     Dates: start: 20161017, end: 20161024

REACTIONS (4)
  - Leukopenia [Recovered/Resolved]
  - Malaise [Recovering/Resolving]
  - Decreased appetite [Recovering/Resolving]
  - Neutropenia [Recovered/Resolved]

NARRATIVE: CASE EVENT DATE: 20161024
